FAERS Safety Report 17191331 (Version 1)
Quarter: 2019Q4

REPORT INFORMATION
  Report Type: Report from Study
  Country: US (occurrence: US)
  Receive Date: 20191223
  Receipt Date: 20191223
  Transmission Date: 20200122
  Serious: Yes (Life-Threatening, Other)
  Sender: FDA-Public Use
  Company Number: NVSC2019US076140

PATIENT
  Age: 59 Year
  Sex: Female

DRUGS (2)
  1. GILENYA [Suspect]
     Active Substance: FINGOLIMOD HYDROCHLORIDE
     Indication: MULTIPLE SCLEROSIS
     Dosage: 0.5 MG, QD
     Route: 048
     Dates: start: 20180104
  2. CODEINE SULFATE. [Concomitant]
     Active Substance: CODEINE SULFATE
     Indication: PRODUCT USED FOR UNKNOWN INDICATION
     Route: 065

REACTIONS (3)
  - Cardiac failure congestive [Not Recovered/Not Resolved]
  - Myocardial infarction [Not Recovered/Not Resolved]
  - Multiple sclerosis relapse [Not Recovered/Not Resolved]

NARRATIVE: CASE EVENT DATE: 20190601
